FAERS Safety Report 4761747-0 (Version None)
Quarter: 2005Q3

REPORT INFORMATION
  Report Type: 
  Country: None (occurrence: None)
  Receive Date: 20050831
  Receipt Date: 20050727
  Transmission Date: 20060218
  Serious: No
  Sender: FDA-Public Use
  Company Number: PHEH2005US08365

PATIENT
  Age: 78 Year
  Sex: Female

DRUGS (1)
  1. ENABLEX [Suspect]
     Indication: BLADDER SPASM
     Dosage: 7.5 MG, QD
     Dates: start: 20050722

REACTIONS (3)
  - ABDOMINAL PAIN [None]
  - CONSTIPATION [None]
  - PYREXIA [None]
